FAERS Safety Report 20502042 (Version 1)
Quarter: 2022Q1

REPORT INFORMATION
  Report Type: Report from Study
  Country: BR (occurrence: BR)
  Receive Date: 20220222
  Receipt Date: 20220222
  Transmission Date: 20220423
  Serious: Yes (Other)
  Sender: FDA-Public Use
  Company Number: BR-UCBSA-2022008434

PATIENT
  Age: 60 Year
  Sex: Female

DRUGS (7)
  1. CERTOLIZUMAB PEGOL [Suspect]
     Active Substance: CERTOLIZUMAB PEGOL
     Indication: Rheumatoid arthritis
     Dosage: 400 MILLIGRAM, MONTHLY (QM)
     Route: 058
     Dates: start: 20210506
  2. LOSARTAN [Concomitant]
     Active Substance: LOSARTAN
     Indication: Hypertension
     Dosage: 50 MILLIGRAM, ONCE DAILY (QD)
     Route: 048
     Dates: start: 2007
  3. HYDROCHLOROTHIAZIDE [Concomitant]
     Active Substance: HYDROCHLOROTHIAZIDE
     Indication: Hypertension
     Dosage: 12 MILLIGRAM, ONCE DAILY (QD)
     Route: 048
     Dates: start: 2007
  4. DEFLAZACORT [Concomitant]
     Active Substance: DEFLAZACORT
     Indication: Bursitis
     Dosage: 6 MILLIGRAM, ONCE DAILY (QD)
     Route: 048
     Dates: start: 2018
  5. DEFLAZACORT [Concomitant]
     Active Substance: DEFLAZACORT
     Indication: Tendonitis
  6. METHOTREXATE [Concomitant]
     Active Substance: METHOTREXATE
     Indication: Rheumatoid arthritis
     Dosage: 3 DOSAGE FORM, 2X/WEEK
     Route: 048
     Dates: start: 2021
  7. FOLIC ACID [Concomitant]
     Active Substance: FOLIC ACID
     Indication: Rheumatoid arthritis
     Dosage: 1 DOSAGE FORM, WEEKLY (QW)
     Route: 048
     Dates: start: 2021

REACTIONS (2)
  - Dengue fever [Recovering/Resolving]
  - Influenza [Recovering/Resolving]

NARRATIVE: CASE EVENT DATE: 20220120
